FAERS Safety Report 16474270 (Version 4)
Quarter: 2020Q3

REPORT INFORMATION
  Report Type: Spontaneous
  Country: US (occurrence: US)
  Receive Date: 20190625
  Receipt Date: 20200730
  Transmission Date: 20201102
  Serious: No
  Sender: FDA-Public Use
  Company Number: US-PFIZER INC-2019250538

PATIENT
  Age: 75 Year
  Sex: Female
  Weight: 108.8 kg

DRUGS (5)
  1. LYRICA [Suspect]
     Active Substance: PREGABALIN
     Indication: BURNING SENSATION
     Dosage: UNK, AS NEED TO BE AND THEN AROUND 3 OR 4 O^CLOCK IN THE MORNING
  2. TRAJENTA [Concomitant]
     Active Substance: LINAGLIPTIN
     Indication: DIABETES MELLITUS
     Dosage: 10 MG, 1X/DAY (AT NIGHT)
  3. LYRICA [Suspect]
     Active Substance: PREGABALIN
     Dosage: UNK, 3X/DAY
  4. LYRICA [Suspect]
     Active Substance: PREGABALIN
     Dosage: 75 MG, 2X/DAY ( ONCE IN THE MORNING AND ONCE AT NIGHT BY MOUTH)
     Route: 048
  5. LYRICA [Suspect]
     Active Substance: PREGABALIN
     Indication: PAIN
     Dosage: 75 MG, 1X/DAY(1 ORAL EVERY DAY)
     Route: 048

REACTIONS (6)
  - Extra dose administered [Unknown]
  - Malaise [Unknown]
  - Anxiety [Unknown]
  - Therapeutic product effect incomplete [Unknown]
  - Gait disturbance [Unknown]
  - Intentional product misuse [Not Recovered/Not Resolved]

NARRATIVE: CASE EVENT DATE: 2019
